FAERS Safety Report 6194247-4 (Version None)
Quarter: 2009Q2

REPORT INFORMATION
  Report Type: 
  Country: None (occurrence: None)
  Receive Date: 20090519
  Receipt Date: 20070605
  Transmission Date: 20091009
  Serious: Yes (Hospitalization)
  Sender: FDA-Public Use
  Company Number: US-ASTRAZENECA-2006UW10827

PATIENT
  Age: 14308 Day
  Sex: Female
  Weight: 74.8 kg

DRUGS (46)
  1. SEROQUEL [Suspect]
     Indication: ANXIETY
     Dosage: 25 MG TO 100 MG
     Route: 048
     Dates: start: 19960101, end: 20060101
  2. SEROQUEL [Suspect]
     Indication: DEPRESSION
     Dosage: 25 MG TO 100 MG
     Route: 048
     Dates: start: 19960101, end: 20060101
  3. SEROQUEL [Suspect]
     Indication: BIPOLAR DISORDER
     Dosage: 25 MG TO 100 MG
     Route: 048
     Dates: start: 19960101, end: 20060101
  4. SEROQUEL [Suspect]
     Dosage: 25-200 MG
     Route: 048
     Dates: start: 20011020
  5. SEROQUEL [Suspect]
     Dosage: 25-200 MG
     Route: 048
     Dates: start: 20011020
  6. SEROQUEL [Suspect]
     Dosage: 25-200 MG
     Route: 048
     Dates: start: 20011020
  7. HALDOL [Concomitant]
     Route: 065
  8. RISPERDAL [Concomitant]
     Route: 048
  9. LISINOPRIL [Concomitant]
     Dosage: 5-20 MG
     Route: 065
  10. GLIPIZIDE [Concomitant]
     Dosage: 5-10MG
     Route: 065
  11. MOTRIN [Concomitant]
     Route: 065
  12. BIAXIN [Concomitant]
     Route: 065
  13. HYCODAN [Concomitant]
     Route: 065
  14. LEXAPRO [Concomitant]
     Dosage: 10-20MG
     Route: 065
  15. LORATADINE [Concomitant]
     Dosage: 10 MG DISPENSED
     Route: 065
  16. DEPAKOTE [Concomitant]
     Dosage: 250-500MG
     Route: 065
  17. ZYRTEC [Concomitant]
     Dosage: 10 MG DISPENSED
     Route: 065
  18. ACCUPRIL [Concomitant]
     Dosage: 10-20MG
     Route: 065
  19. TYLENOL [Concomitant]
     Route: 065
  20. FLAGYL [Concomitant]
     Route: 065
  21. PENICILLIN [Concomitant]
     Route: 065
  22. ERYTHROMYCIN [Concomitant]
     Route: 065
  23. METFORMIN HCL [Concomitant]
     Route: 065
  24. NAPROSYN [Concomitant]
     Route: 065
  25. LASIX [Concomitant]
     Route: 065
  26. REMERON [Concomitant]
     Dosage: 30 MG DISPENSED
     Route: 065
  27. OXYCODONE HCL [Concomitant]
     Dosage: STRENGTH: 5-325 MG, DISPENSED
     Route: 048
  28. DIPHENHYDRAMINE HCL [Concomitant]
     Dosage: 25 MG DISPENSED
     Route: 065
  29. DIPHENHYDRAMINE HCL [Concomitant]
     Dosage: 50 MG/ML
     Route: 065
  30. METHYLPREDNISOLONE 4MG TAB [Concomitant]
     Dosage: 4 MG DISPENSED
     Route: 065
  31. AVELOX [Concomitant]
     Route: 065
  32. PSEUDOVENT [Concomitant]
     Dosage: 400 MG DISPENSED
     Route: 065
  33. FLONASE [Concomitant]
     Dosage: 0.05% DISPENSED
     Route: 045
  34. NEXIUM [Concomitant]
     Dosage: 40 MG DISPENSED
     Route: 065
  35. PHENERGAN [Concomitant]
     Route: 065
  36. FAMOTIDINE [Concomitant]
     Dosage: 20 MG DISPENSED
     Route: 065
  37. QUINAPRIL [Concomitant]
     Dosage: 10-20MG
     Route: 065
  38. FLUCONAZOLE [Concomitant]
     Dosage: 150 MG DISPENSED
     Route: 065
  39. BENZTROPINE [Concomitant]
     Dosage: 1 MG, BID DISPENSED
     Route: 048
  40. CEPHALEXIN [Concomitant]
     Dosage: 500 MG, BID DISPENSED
     Route: 048
  41. BACTROBAN [Concomitant]
     Dosage: 2 % OF 22 GM DISPENSED
     Route: 065
  42. CLINDAMYCIN HCL [Concomitant]
     Dosage: 4 CAPSULES, Q 6 H DISPENSED
     Route: 048
  43. ZYPREXA [Concomitant]
     Route: 048
  44. PROZAC [Concomitant]
     Route: 048
  45. TRAZODONE HCL [Concomitant]
     Route: 048
  46. PREVACID [Concomitant]
     Dosage: 30 MG DISPENSED
     Route: 065

REACTIONS (12)
  - ATTENTION DEFICIT/HYPERACTIVITY DISORDER [None]
  - CHEST DISCOMFORT [None]
  - DEPRESSION [None]
  - DIABETES MELLITUS [None]
  - EAR PAIN [None]
  - FACIAL PAIN [None]
  - GASTROOESOPHAGEAL REFLUX DISEASE [None]
  - OBSESSIVE-COMPULSIVE DISORDER [None]
  - OROPHARYNGEAL PAIN [None]
  - PARANOIA [None]
  - SLEEP DISORDER [None]
  - THINKING ABNORMAL [None]
